FAERS Safety Report 9374025 (Version 1)
Quarter: 2013Q2

REPORT INFORMATION
  Report Type: Spontaneous
  Country: IT (occurrence: IT)
  Receive Date: 20130628
  Receipt Date: 20130628
  Transmission Date: 20140414
  Serious: Yes (Death)
  Sender: FDA-Public Use
  Company Number: IT-ACCORD-018246

PATIENT
  Age: 48 Year
  Sex: Female

DRUGS (2)
  1. TRAMADOL [Suspect]
     Indication: PRODUCT USED FOR UNKNOWN INDICATION
  2. CARBAMAZEPINE [Concomitant]

REACTIONS (5)
  - Toxicity to various agents [Fatal]
  - Respiratory depression [Fatal]
  - Cardiac arrest [Fatal]
  - Completed suicide [Fatal]
  - Bradycardia [Fatal]
